FAERS Safety Report 6083135-X (Version None)
Quarter: 2009Q1

REPORT INFORMATION
  Report Type: 
  Country: None (occurrence: None)
  Receive Date: 20090213
  Receipt Date: 20090213
  Transmission Date: 20090719
  Serious: No
  Sender: FDA-Public Use
  Company Number: None

PATIENT
  Sex: Female
  Weight: 65.7716 kg

DRUGS (2)
  1. SINEMET [Suspect]
     Dosage: 25/100 QID PO DAILY
     Route: 048
  2. SINEMET [Suspect]
     Dosage: 25/100 TID PO DAILY
     Route: 048

REACTIONS (1)
  - PARKINSON'S DISEASE [None]
